FAERS Safety Report 9154647 (Version 1)
Quarter: 2013Q1

REPORT INFORMATION
  Report Type: Report from Study
  Country: US (occurrence: US)
  Receive Date: 20130311
  Receipt Date: 20130311
  Transmission Date: 20140127
  Serious: No
  Sender: FDA-Public Use
  Company Number: US-ABBOTT-12P-163-0923727-00

PATIENT
  Sex: Female

DRUGS (4)
  1. LUPRON DEPOT 11.25 MG [Suspect]
     Indication: ENDOMETRIOSIS
     Dates: start: 201201, end: 201204
  2. WELLBUTRIN [Concomitant]
     Indication: PRODUCT USED FOR UNKNOWN INDICATION
  3. CELEXA [Concomitant]
     Indication: PRODUCT USED FOR UNKNOWN INDICATION
  4. XANAX [Concomitant]
     Indication: PRODUCT USED FOR UNKNOWN INDICATION

REACTIONS (2)
  - Pelvic pain [Not Recovered/Not Resolved]
  - Drug ineffective [Not Recovered/Not Resolved]
